FAERS Safety Report 5519386-X (Version None)
Quarter: 2007Q4

REPORT INFORMATION
  Report Type: 
  Country: None (occurrence: None)
  Receive Date: 20071114
  Receipt Date: 20071102
  Transmission Date: 20080405
  Serious: Yes (Other)
  Sender: FDA-Public Use
  Company Number: 07H-167-0312867-00

PATIENT
  Age: 55 Year
  Sex: Female
  Weight: 60 kg

DRUGS (14)
  1. PROPOFOL [Suspect]
     Indication: INDUCTION OF ANAESTHESIA
     Dosage: 150 MG, INTRAVENOUS
     Route: 042
     Dates: start: 20060601
  2. PROPOFOL [Suspect]
     Indication: GENERAL ANAESTHESIA
     Dosage: 150 MG, INTRAVENOUS
     Route: 042
     Dates: start: 20050701
  3. ALFENTANIL [Suspect]
     Indication: GENERAL ANAESTHESIA
     Dosage: 0.5 MG, INTRAVENOUS
     Route: 042
     Dates: start: 20050701
  4. FENTANYL [Suspect]
     Indication: GENERAL ANAESTHESIA
     Dosage: 0.1 MG, INTRAVENOUS; 50 MG,
     Route: 042
     Dates: start: 20050701
  5. FENTANYL [Suspect]
     Indication: INDUCTION OF ANAESTHESIA
     Dosage: 0.1 MG, INTRAVENOUS; 50 MG,
     Route: 042
     Dates: start: 20050701
  6. FENTANYL [Suspect]
     Indication: GENERAL ANAESTHESIA
     Dosage: 0.1 MG, INTRAVENOUS; 50 MG,
     Route: 042
     Dates: start: 20060601
  7. FENTANYL [Suspect]
     Indication: INDUCTION OF ANAESTHESIA
     Dosage: 0.1 MG, INTRAVENOUS; 50 MG,
     Route: 042
     Dates: start: 20060601
  8. GABAPENTIN [Suspect]
     Indication: MUSCULOSKELETAL PAIN
     Dosage: 600 MG, 3 IN 1 D, ORAL
     Route: 048
     Dates: start: 20050501
  9. ISOFLURANE [Suspect]
     Indication: MAINTENANCE OF ANAESTHESIA
     Dates: start: 20060601
  10. DEXAMETHASONE TAB [Concomitant]
  11. ACETAMINOPHEN [Concomitant]
  12. CODEINE PHOSPHATE (CODEINE PHOSPHATE) [Concomitant]
  13. OXYGEN (OXYGEN) [Concomitant]
  14. COMPRESSED AIR [Concomitant]

REACTIONS (6)
  - DRUG INTERACTION [None]
  - DYSTONIA [None]
  - MYOCLONUS [None]
  - MYOTONIA [None]
  - NO THERAPEUTIC RESPONSE [None]
  - VARICOSE VEIN OPERATION [None]
